FAERS Safety Report 19488277 (Version 2)
Quarter: 2021Q4

REPORT INFORMATION
  Report Type: Spontaneous
  Country: AU (occurrence: AU)
  Receive Date: 20210702
  Receipt Date: 20211217
  Transmission Date: 20220304
  Serious: Yes (Hospitalization, Other)
  Sender: FDA-Public Use
  Company Number: AU-DSPHARMA-2021DSP009197

PATIENT
  Age: 38 Year
  Sex: Male

DRUGS (18)
  1. LATUDA [Suspect]
     Active Substance: LURASIDONE HYDROCHLORIDE
     Indication: Product used for unknown indication
     Dosage: 40 MG, QD
     Route: 048
     Dates: start: 20210220
  2. LATUDA [Suspect]
     Active Substance: LURASIDONE HYDROCHLORIDE
     Dosage: 60 MG, QD
     Route: 048
     Dates: start: 20210223
  3. LATUDA [Suspect]
     Active Substance: LURASIDONE HYDROCHLORIDE
     Dosage: 80 MG, QD
     Route: 048
     Dates: start: 20210302
  4. CLONAZEPAM [Suspect]
     Active Substance: CLONAZEPAM
     Indication: Product used for unknown indication
     Dosage: 1 MG, QOD
     Route: 065
  5. CLOZAPINE [Suspect]
     Active Substance: CLOZAPINE
     Indication: Schizophrenia
     Dosage: 100 MG, QOD
     Route: 048
     Dates: start: 20160302, end: 20210128
  6. CLOZAPINE [Suspect]
     Active Substance: CLOZAPINE
     Dosage: 325 MG
     Route: 048
  7. MIRTAZAPINE [Suspect]
     Active Substance: MIRTAZAPINE
     Indication: Depressed mood
     Dosage: 30 MG, QOD
     Route: 065
  8. MIRTAZAPINE [Suspect]
     Active Substance: MIRTAZAPINE
     Dosage: 45 MG, QOD
     Route: 065
     Dates: start: 20210308
  9. ASENAPINE [Suspect]
     Active Substance: ASENAPINE
     Indication: Product used for unknown indication
     Dosage: 10 MG, AT NIGHT WITH AN INTERVAL OF 1 DAY
     Route: 060
  10. ASENAPINE [Suspect]
     Active Substance: ASENAPINE
     Dosage: 5 MG, IN THE MORNING WITH AN INTERVAL OF 1 DAY
     Route: 060
  11. ASENAPINE [Suspect]
     Active Substance: ASENAPINE
     Dosage: 5 MG,TWICE DAILY WITH AN INTERVAL OF 1 DAY
     Route: 060
     Dates: start: 20210318
  12. DESVENLAFAXINE [Suspect]
     Active Substance: DESVENLAFAXINE
     Indication: Product used for unknown indication
     Dosage: 200 MG, IN THE MORNING WITH AN INTERVAL OF 1 DAY
     Route: 065
  13. TRIMETHOPRIM [Suspect]
     Active Substance: TRIMETHOPRIM
     Indication: Product used for unknown indication
     Dosage: 300 MG
     Route: 065
     Dates: start: 20210219, end: 20210226
  14. ARIPIPRAZOLE [Suspect]
     Active Substance: ARIPIPRAZOLE
     Indication: Product used for unknown indication
     Dosage: 20 MG, QOD
     Route: 065
     Dates: end: 20210220
  15. TERBUTALINE SULFATE [Concomitant]
     Active Substance: TERBUTALINE SULFATE
     Dosage: UNK
     Route: 065
  16. LORAZEPAM [Concomitant]
     Active Substance: LORAZEPAM
     Dosage: UNK
     Route: 065
  17. OLANZAPINE [Concomitant]
     Active Substance: OLANZAPINE
     Dosage: UNK
     Route: 065
  18. BUDESONIDE [Concomitant]
     Active Substance: BUDESONIDE
     Dosage: UNK
     Route: 065

REACTIONS (12)
  - Paranoia [Unknown]
  - Psychotic disorder [Unknown]
  - Quality of life decreased [Unknown]
  - Vomiting [Unknown]
  - Anxiety [Unknown]
  - Depressed mood [Unknown]
  - Delusion [Unknown]
  - White blood cell count decreased [Recovered/Resolved]
  - Neutrophil count decreased [Recovered/Resolved]
  - Sedation [Recovering/Resolving]
  - Weight abnormal [Recovering/Resolving]
  - Off label use [Unknown]

NARRATIVE: CASE EVENT DATE: 20160101
